FAERS Safety Report 22034946 (Version 1)
Quarter: 2023Q1

REPORT INFORMATION
  Report Type: Report from Study
  Country: FR (occurrence: FR)
  Receive Date: 20230224
  Receipt Date: 20230224
  Transmission Date: 20230418
  Serious: Yes (Hospitalization)
  Sender: FDA-Public Use
  Company Number: FR-ABBVIE-4311278

PATIENT
  Age: 7 Year
  Sex: Female
  Weight: 17.7 kg

DRUGS (13)
  1. VENETOCLAX [Suspect]
     Active Substance: VENETOCLAX
     Indication: Recurrent cancer
     Dosage: DAYS 1-10 OF EACH CYCLE
     Route: 048
     Dates: start: 20220502, end: 20230120
  2. VENETOCLAX [Suspect]
     Active Substance: VENETOCLAX
     Indication: Recurrent cancer
     Dosage: DAYS 1-10 OF EACH CYCLE
     Route: 048
     Dates: start: 20230121, end: 20230125
  3. TOPOTECAN HYDROCHLORIDE [Suspect]
     Active Substance: TOPOTECAN HYDROCHLORIDE
     Indication: Recurrent cancer
     Dosage: MAXIMUM 5 DAYS EVERY 21 DAYS
     Route: 042
     Dates: start: 20220504, end: 20230119
  4. TEMOZOLOMIDE [Suspect]
     Active Substance: TEMOZOLOMIDE
     Indication: Recurrent cancer
     Dosage: MAXIMUM 4 DAYS PER EACH DOSING ADMINISTRATION SCHEDULE?
     Route: 042
     Dates: start: 20220504, end: 20230119
  5. TEMSIROLIMUS [Suspect]
     Active Substance: TEMSIROLIMUS
     Indication: Recurrent cancer
     Dosage: ONE DOSE PER EACH DOSING ADMINISTRATION SCHEDULE
     Route: 042
     Dates: start: 20220706, end: 20230124
  6. LENOGRASTIM [Concomitant]
     Active Substance: LENOGRASTIM
     Indication: Prophylaxis
     Route: 058
     Dates: start: 20230121
  7. DOLIPRANE [Concomitant]
     Active Substance: ACETAMINOPHEN
     Indication: Toothache
     Dosage: TIME INTERVAL: AS NECESSARY
     Route: 048
     Dates: start: 20230123
  8. RACECADOTRIL [Concomitant]
     Active Substance: RACECADOTRIL
     Indication: Diarrhoea
     Dosage: TIME INTERVAL: AS NECESSARY: THRICE A DAY (TID) IF NEEDED
     Route: 048
     Dates: start: 20220712
  9. IMODIUM [Concomitant]
     Active Substance: LOPERAMIDE HYDROCHLORIDE
     Indication: Diarrhoea
     Dosage: TIME INTERVAL: 0.33333333 DAYS: 1 DOSE PER WEIGHT
     Route: 048
     Dates: start: 20221010
  10. MELATONIN [Concomitant]
     Active Substance: MELATONIN
     Indication: Sleep disorder
     Route: 048
     Dates: start: 202012
  11. ATARAX [Concomitant]
     Active Substance: HYDROXYZINE HYDROCHLORIDE
     Indication: Sleep disorder
     Route: 048
     Dates: start: 20220504
  12. BACTRIM [Concomitant]
     Active Substance: SULFAMETHOXAZOLE\TRIMETHOPRIM
     Indication: Antifungal prophylaxis
     Dosage: TIME INTERVAL: 0.33333333 WEEKS
     Dates: start: 201912
  13. EMLA [Concomitant]
     Active Substance: LIDOCAINE\PRILOCAINE
     Indication: Pain prophylaxis
     Dosage: TIME INTERVAL: AS NECESSARY
     Route: 061
     Dates: start: 2019

REACTIONS (1)
  - Clostridium difficile infection [Recovered/Resolved]

NARRATIVE: CASE EVENT DATE: 20230210
